FAERS Safety Report 6006783-1 (Version None)
Quarter: 2008Q4

REPORT INFORMATION
  Report Type: 
  Country: None (occurrence: None)
  Receive Date: 20081217
  Receipt Date: 20081209
  Transmission Date: 20090506
  Serious: Yes (Other)
  Sender: FDA-Public Use
  Company Number: PHBS2008JP06155

PATIENT
  Sex: Male
  Weight: 79 kg

DRUGS (5)
  1. NEORAL [Suspect]
     Indication: LIVER TRANSPLANT
     Dosage: 200 MG, QD
     Dates: start: 20061217
  2. SANDIMMUNE [Suspect]
     Indication: LIVER TRANSPLANT
     Dosage: 140 MG PER DAY
     Route: 042
     Dates: start: 20061218, end: 20061230
  3. SIMULECT [Concomitant]
     Indication: LIVER TRANSPLANT
     Dosage: 20 MG/DAY
     Route: 042
     Dates: start: 20061218, end: 20061221
  4. SOLU-MEDROL [Concomitant]
     Indication: LIVER TRANSPLANT
     Dosage: UNK
     Dates: start: 20061217
  5. CD25 ANTIBODY [Concomitant]
     Indication: HEART TRANSPLANT

REACTIONS (3)
  - EXTRAPYRAMIDAL DISORDER [None]
  - PLEURAL EFFUSION [None]
  - WHITE BLOOD CELL COUNT INCREASED [None]
